FAERS Safety Report 12602172 (Version 1)
Quarter: 2016Q3

REPORT INFORMATION
  Report Type: Spontaneous
  Country: US (occurrence: None)
  Receive Date: 20160727
  Receipt Date: 20160727
  Transmission Date: 20161109
  Serious: No
  Sender: FDA-Public Use
  Company Number: None

PATIENT
  Age: 63 Year
  Sex: Male
  Weight: 79.1 kg

DRUGS (1)
  1. CEFEPIME [Suspect]
     Active Substance: CEFEPIME HYDROCHLORIDE
     Indication: OSTEOMYELITIS
     Dates: start: 20160611, end: 20160708

REACTIONS (3)
  - Nephritis [None]
  - Encephalopathy [None]
  - Acute kidney injury [None]

NARRATIVE: CASE EVENT DATE: 20160701
